FAERS Safety Report 13553400 (Version 2)
Quarter: 2017Q2

REPORT INFORMATION
  Report Type: Spontaneous
  Country: CH (occurrence: CH)
  Receive Date: 20170517
  Receipt Date: 20170525
  Transmission Date: 20170830
  Serious: Yes (Hospitalization, Other)
  Sender: FDA-Public Use
  Company Number: CH-BEH-2017080393

PATIENT
  Age: 43 Year
  Sex: Female
  Weight: 54 kg

DRUGS (3)
  1. PRIVIGEN [Suspect]
     Active Substance: HUMAN IMMUNOGLOBULIN G
     Indication: MUSCULAR WEAKNESS
     Dosage: 20 G, QD
     Route: 042
     Dates: start: 20170501, end: 20170505
  2. PARACETAMOL [Concomitant]
     Active Substance: ACETAMINOPHEN
     Indication: HEADACHE
     Dosage: 1000 MG, TID
     Route: 048
     Dates: start: 20150501, end: 20150505
  3. IBUPROFEN. [Concomitant]
     Active Substance: IBUPROFEN
     Indication: HEADACHE
     Dosage: 400 MG, TID
     Route: 048
     Dates: start: 20170502, end: 201705

REACTIONS (4)
  - Gait disturbance [Not Recovered/Not Resolved]
  - Vertigo [Not Recovered/Not Resolved]
  - Headache [Not Recovered/Not Resolved]
  - Leukopenia [Not Recovered/Not Resolved]

NARRATIVE: CASE EVENT DATE: 20170501
